FAERS Safety Report 15972741 (Version 1)
Quarter: 2019Q1

REPORT INFORMATION
  Report Type: Spontaneous
  Country: DE (occurrence: DE)
  Receive Date: 20190216
  Receipt Date: 20190216
  Transmission Date: 20190418
  Serious: Yes (Congenital Anomaly)
  Sender: FDA-Public Use
  Company Number: DE-TEVA-2019-DE-1011809

PATIENT
  Sex: Female
  Weight: 4.43 kg

DRUGS (3)
  1. METFORMIN [Suspect]
     Active Substance: METFORMIN HYDROCHLORIDE
     Indication: POLYCYSTIC OVARIES
     Dosage: 3000 MILLIGRAM DAILY; 3000 [MG/D (3 X 1000) ]
     Route: 064
  2. FOLS?URE [Concomitant]
     Indication: PROPHYLAXIS OF NEURAL TUBE DEFECT
     Route: 064
     Dates: start: 20170127, end: 20171106
  3. CETIRIZINE [Suspect]
     Active Substance: CETIRIZINE HYDROCHLORIDE
     Indication: CONJUNCTIVITIS ALLERGIC
     Dosage: 10 MILLIGRAM DAILY;
     Route: 064
     Dates: start: 20170310, end: 20170515

REACTIONS (2)
  - Hydronephrosis [Not Recovered/Not Resolved]
  - Pelvi-ureteric obstruction [Not Recovered/Not Resolved]
